FAERS Safety Report 14240385 (Version 1)
Quarter: 2017Q4

REPORT INFORMATION
  Report Type: Spontaneous
  Country: NO (occurrence: NO)
  Receive Date: 20171130
  Receipt Date: 20171130
  Transmission Date: 20180321
  Serious: Yes (Disabling)
  Sender: FDA-Public Use
  Company Number: NO-PFIZER INC-2017509772

PATIENT
  Age: 66 Year
  Sex: Male
  Weight: 78 kg

DRUGS (3)
  1. DOLCONTIN [Concomitant]
     Active Substance: MORPHINE
     Indication: PAIN
     Dosage: TAKEN IN THE EVENING BEFORE GOING TO BED. THE FIRST DAYS IT WAS TAKEN EVERY NIGHT, THEN SPORADIC...
     Dates: start: 20170912, end: 20171106
  2. LEVAXIN [Concomitant]
     Active Substance: LEVOTHYROXINE SODIUM
     Indication: HYPOTHYROIDISM
     Dosage: UNK
  3. LYRICA [Suspect]
     Active Substance: PREGABALIN
     Indication: NEURALGIA
     Dosage: 250 MG, 1 DOSE EVERY TWELVE HOURS
     Dates: start: 20161101

REACTIONS (3)
  - Seborrhoea [Not Recovered/Not Resolved]
  - Drug effect incomplete [Unknown]
  - Eczema [Not Recovered/Not Resolved]

NARRATIVE: CASE EVENT DATE: 20171010
